FAERS Safety Report 24238853 (Version 6)
Quarter: 2025Q2

REPORT INFORMATION
  Report Type: Spontaneous
  Country: JP (occurrence: JP)
  Receive Date: 20240822
  Receipt Date: 20250416
  Transmission Date: 20250717
  Serious: Yes (Death, Other)
  Sender: ALEXION PHARMACEUTICALS
  Company Number: 2024A190167

PATIENT
  Age: 82 Year

DRUGS (6)
  1. ONDEXXYA [Suspect]
     Active Substance: ANDEXANET ALFA
     Indication: Haemorrhage
  2. HEPARIN SODIUM [Concomitant]
     Active Substance: HEPARIN SODIUM
  3. HEPARIN SODIUM [Concomitant]
     Active Substance: HEPARIN SODIUM
     Route: 065
  4. HEPARIN SODIUM [Concomitant]
     Active Substance: HEPARIN SODIUM
     Route: 065
  5. EDOXABAN TOSYLATE [Concomitant]
     Active Substance: EDOXABAN TOSYLATE
     Indication: Atrial tachycardia
     Route: 065
  6. ASPIRIN [Concomitant]
     Active Substance: ASPIRIN
     Indication: Atrial tachycardia
     Route: 065

REACTIONS (4)
  - Acute myocardial infarction [Fatal]
  - Heparin resistance [Fatal]
  - Pneumonia [Not Recovered/Not Resolved]
  - Cardiogenic shock [Unknown]
